FAERS Safety Report 18325284 (Version 1)
Quarter: 2020Q3

REPORT INFORMATION
  Report Type: Spontaneous
  Country: US (occurrence: US)
  Receive Date: 20200929
  Receipt Date: 20200929
  Transmission Date: 20201103
  Serious: Yes (Hospitalization, Other)
  Sender: FDA-Public Use
  Company Number: US-JNJFOC-A-US2019-198705

PATIENT
  Age: 59 Year
  Sex: Female
  Weight: 66.28 kg

DRUGS (4)
  1. UPTRAVI [Suspect]
     Active Substance: SELEXIPAG
     Route: 048
     Dates: end: 2020
  2. SILDENAFIL CITRATE. [Concomitant]
     Active Substance: SILDENAFIL CITRATE
  3. UPTRAVI [Suspect]
     Active Substance: SELEXIPAG
     Indication: PULMONARY ARTERIAL HYPERTENSION
     Route: 048
     Dates: start: 201912, end: 20200803
  4. UPTRAVI [Suspect]
     Active Substance: SELEXIPAG
     Route: 048

REACTIONS (9)
  - Systemic lupus erythematosus [Unknown]
  - Headache [Unknown]
  - Hospitalisation [Unknown]
  - Neuropathy peripheral [Unknown]
  - Fluid retention [Unknown]
  - Pain in extremity [Unknown]
  - Ocular discomfort [Unknown]
  - Cellulitis [Unknown]
  - Pulmonary hypertension [Unknown]
